FAERS Safety Report 13379615 (Version 1)
Quarter: 2017Q1

REPORT INFORMATION
  Report Type: Spontaneous
  Country: JP (occurrence: JP)
  Receive Date: 20170328
  Receipt Date: 20170328
  Transmission Date: 20170429
  Serious: Yes (Hospitalization)
  Sender: FDA-Public Use
  Company Number: JP-ELI_LILLY_AND_COMPANY-JP201612004578

PATIENT
  Age: 63 Year
  Sex: Male
  Weight: 64 kg

DRUGS (17)
  1. ZYPREXA [Suspect]
     Active Substance: OLANZAPINE
     Indication: BIPOLAR DISORDER
     Dosage: UNK
     Route: 048
     Dates: start: 20160811, end: 20160817
  2. DAIKENCHUTO [Suspect]
     Active Substance: HERBALS
     Indication: PRODUCT USED FOR UNKNOWN INDICATION
     Route: 065
  3. RIVOTRIL [Suspect]
     Active Substance: CLONAZEPAM
     Indication: PRODUCT USED FOR UNKNOWN INDICATION
  4. ZYPREXA [Suspect]
     Active Substance: OLANZAPINE
     Indication: BIPOLAR DISORDER
     Dosage: UNK
     Route: 048
     Dates: start: 20160728, end: 20160803
  5. LITHIUM. [Suspect]
     Active Substance: LITHIUM
     Dosage: UNK
     Route: 048
     Dates: start: 20160823, end: 20160831
  6. QUETIAPINE. [Suspect]
     Active Substance: QUETIAPINE
     Indication: PRODUCT USED FOR UNKNOWN INDICATION
     Route: 065
  7. ZYPREXA [Suspect]
     Active Substance: OLANZAPINE
     Dosage: UNK
     Route: 048
     Dates: start: 20160811, end: 20160817
  8. ZYPREXA [Suspect]
     Active Substance: OLANZAPINE
     Indication: BIPOLAR DISORDER
     Dosage: UNK
     Route: 048
     Dates: start: 20160804, end: 20160810
  9. LITHIUM. [Suspect]
     Active Substance: LITHIUM
     Dosage: UNK
     Route: 048
     Dates: start: 20160616, end: 20160622
  10. LITHIUM. [Suspect]
     Active Substance: LITHIUM
     Dosage: UNK
     Route: 048
     Dates: start: 20161027
  11. LAXOBERON [Suspect]
     Active Substance: SODIUM PICOSULFATE
     Indication: PRODUCT USED FOR UNKNOWN INDICATION
     Route: 065
  12. LITHIUM. [Suspect]
     Active Substance: LITHIUM
     Indication: BIPOLAR DISORDER
     Dosage: UNK
     Route: 048
     Dates: start: 20160609, end: 20160615
  13. KETOPROFEN. [Suspect]
     Active Substance: KETOPROFEN
     Indication: PRODUCT USED FOR UNKNOWN INDICATION
     Route: 065
  14. PANTETHINE [Suspect]
     Active Substance: PANTETHINE
     Indication: PRODUCT USED FOR UNKNOWN INDICATION
     Route: 065
  15. ZYPREXA [Suspect]
     Active Substance: OLANZAPINE
     Dosage: UNK
     Route: 048
     Dates: start: 20160818, end: 20161019
  16. LITHIUM. [Suspect]
     Active Substance: LITHIUM
     Dosage: UNK
     Route: 048
     Dates: start: 20160901, end: 20161026
  17. LITHIUM. [Suspect]
     Active Substance: LITHIUM
     Dosage: UNK
     Route: 048
     Dates: start: 20160623, end: 20160629

REACTIONS (1)
  - Erythema multiforme [Recovering/Resolving]

NARRATIVE: CASE EVENT DATE: 20160911
